FAERS Safety Report 9222732 (Version 1)
Quarter: 2013Q1

REPORT INFORMATION
  Report Type: Spontaneous
  Country: US (occurrence: None)
  Receive Date: 20120914
  Receipt Date: 20120914
  Transmission Date: 20140127
  Serious: Yes (Other)
  Sender: FDA-Public Use
  Company Number: JPI-P-022101

PATIENT
  Age: 35 Year
  Sex: Male
  Weight: 83.92 kg

DRUGS (2)
  1. XYREM [Suspect]
     Indication: CATAPLEXY
     Dosage: 2.25 GM 2 IN 1 D
     Route: 048
     Dates: start: 20120412
  2. METHYLPHRENIDATE [Concomitant]

REACTIONS (5)
  - Hypertension [None]
  - Amnesia [None]
  - Hyperhidrosis [None]
  - Condition aggravated [None]
  - Feeling hot [None]
